FAERS Safety Report 4487780-4 (Version None)
Quarter: 2004Q4

REPORT INFORMATION
  Report Type: 
  Country: None (occurrence: None)
  Receive Date: 20041027
  Receipt Date: 20041027
  Transmission Date: 20050328
  Serious: Yes (Life-Threatening)
  Sender: FDA-Public Use
  Company Number: None

PATIENT
  Age: 59 Year
  Sex: Male
  Weight: 108 kg

DRUGS (7)
  1. INTEGRILIN [Suspect]
     Indication: CATHETERISATION CARDIAC
     Dates: start: 20041020, end: 20041020
  2. INTEGRILIN [Suspect]
     Indication: MYOCARDIAL INFARCTION
     Dates: start: 20041020, end: 20041020
  3. ASPIRIN [Concomitant]
  4. NITROPASTE [Concomitant]
  5. LOVENOX [Concomitant]
  6. MORPHINE [Concomitant]
  7. RESTORIL [Concomitant]

REACTIONS (8)
  - BLOOD PRESSURE DECREASED [None]
  - DYSPNOEA [None]
  - EYE PRURITUS [None]
  - INFUSION RELATED REACTION [None]
  - LACRIMATION INCREASED [None]
  - RASH [None]
  - RHINORRHOEA [None]
  - WHEEZING [None]
